FAERS Safety Report 9165258 (Version 1)
Quarter: 2013Q1

REPORT INFORMATION
  Report Type: Spontaneous
  Country: US (occurrence: US)
  Receive Date: 20130315
  Receipt Date: 20130315
  Transmission Date: 20140127
  Serious: Yes (Other)
  Sender: FDA-Public Use
  Company Number: US-AMGEN-USASP2013016185

PATIENT
  Age: 96 Year
  Sex: Female

DRUGS (6)
  1. PROLIA [Suspect]
     Indication: OSTEOPOROSIS POSTMENOPAUSAL
  2. AGGRENOX [Concomitant]
  3. AMLODIPINE [Concomitant]
  4. DIGOXIN [Concomitant]
  5. FLONASE [Concomitant]
  6. LISINOPRIL [Concomitant]

REACTIONS (3)
  - Hip fracture [Unknown]
  - Rash pruritic [Recovered/Resolved]
  - Fall [Unknown]
